FAERS Safety Report 8832830 (Version 1)
Quarter: 2012Q4

REPORT INFORMATION
  Report Type: 
  Country: BR (occurrence: BR)
  Receive Date: 20121010
  Receipt Date: 20121010
  Transmission Date: 20130627
  Serious: Yes (Other)
  Sender: FDA-Public Use
  Company Number: BR-AMGEN-BRASP2012063795

PATIENT
  Age: 67 Year
  Sex: Female
  Weight: 43 kg

DRUGS (4)
  1. ENBREL [Suspect]
     Indication: RHEUMATOID ARTHRITIS
     Dosage: 50 mg, once weekly
     Route: 058
     Dates: start: 201205
  2. HYDROCHLOROTHIAZIDE [Concomitant]
     Indication: BLOOD PRESSURE
     Dosage: 25 mg, 1x/day
     Dates: start: 2010
  3. PROPANOLOL                         /00030001/ [Concomitant]
     Dosage: 40 mg, 3x/day
     Dates: start: 2010, end: 201209
  4. ATENOLOL [Concomitant]
     Dosage: 25 mg, 2x/day
     Dates: start: 201209

REACTIONS (7)
  - Retinal detachment [Unknown]
  - Cataract [Unknown]
  - Arthralgia [Recovering/Resolving]
  - Swelling [Recovering/Resolving]
  - Injection site erythema [Unknown]
  - Injection site induration [Unknown]
  - Injection site pain [Unknown]
